FAERS Safety Report 17211478 (Version 1)
Quarter: 2019Q4

REPORT INFORMATION
  Report Type: Spontaneous
  Country: JP (occurrence: JP)
  Receive Date: 20191229
  Receipt Date: 20191229
  Transmission Date: 20200122
  Serious: Yes (Other)
  Sender: FDA-Public Use
  Company Number: NVSJ2019JP006144

PATIENT
  Age: 67 Year
  Sex: Female

DRUGS (1)
  1. SLOW-K TAB [Suspect]
     Active Substance: POTASSIUM CHLORIDE
     Indication: PRODUCT USED FOR UNKNOWN INDICATION
     Dosage: UNK
     Route: 048

REACTIONS (1)
  - Fracture [Unknown]
